FAERS Safety Report 23178217 (Version 1)
Quarter: 2023Q4

REPORT INFORMATION
  Report Type: Spontaneous
  Country: US (occurrence: None)
  Receive Date: 20231110
  Receipt Date: 20231110
  Transmission Date: 20240110
  Serious: No
  Sender: FDA-Public Use
  Company Number: None

PATIENT
  Sex: Female

DRUGS (1)
  1. SKYRIZI [Suspect]
     Active Substance: RISANKIZUMAB-RZAA
     Indication: Psoriasis
     Dosage: OTHER FREQUENCY : EVERY 12 WEEKS;?OTHER ROUTE : INJECTION;?
     Route: 050
     Dates: start: 20230709

REACTIONS (5)
  - Joint swelling [None]
  - Paraesthesia [None]
  - Fine motor skill dysfunction [None]
  - Cellulitis [None]
  - Drug ineffective [None]
